FAERS Safety Report 25030316 (Version 1)
Quarter: 2025Q1

REPORT INFORMATION
  Report Type: Spontaneous
  Country: HU (occurrence: HU)
  Receive Date: 20250303
  Receipt Date: 20250303
  Transmission Date: 20250409
  Serious: Yes (Other)
  Sender: ROCHE
  Company Number: HU-ROCHE-10000216346

PATIENT
  Age: 21 Year
  Sex: Male

DRUGS (6)
  1. TAMIFLU [Suspect]
     Active Substance: OSELTAMIVIR PHOSPHATE
     Indication: Influenza
     Route: 065
  2. TAMIFLU [Suspect]
     Active Substance: OSELTAMIVIR PHOSPHATE
     Indication: Pneumonia
  3. PREDNISONE [Suspect]
     Active Substance: PREDNISONE
     Indication: Influenza
     Route: 065
  4. CEFDINIR [Concomitant]
     Active Substance: CEFDINIR
  5. AZITHROMYCIN [Concomitant]
     Active Substance: AZITHROMYCIN
  6. METHYLPREDNISOLONE [Concomitant]
     Active Substance: METHYLPREDNISOLONE

REACTIONS (8)
  - Neck pain [Unknown]
  - Flushing [Unknown]
  - Brain fog [Unknown]
  - Headache [Unknown]
  - Back pain [Unknown]
  - Fatigue [Unknown]
  - Asthenia [Unknown]
  - Paraesthesia [Unknown]
